FAERS Safety Report 4703462-5 (Version None)
Quarter: 2005Q2

REPORT INFORMATION
  Report Type: 
  Country: None (occurrence: None)
  Receive Date: 20050629
  Receipt Date: 20050614
  Transmission Date: 20051028
  Serious: Yes (Other)
  Sender: FDA-Public Use
  Company Number: USA050189302

PATIENT
  Age: 84 Year
  Sex: Female

DRUGS (10)
  1. FORTEO [Suspect]
     Indication: OSTEOPOROSIS
     Dates: start: 20050126
  2. TOPROL-XL [Concomitant]
  3. COUMADIN [Concomitant]
  4. DIGOXIN [Concomitant]
  5. FOLIC ACID [Concomitant]
  6. FLEXERIL [Concomitant]
  7. OSCAL (CALCIUM CARBONATE) [Concomitant]
  8. VITAMIN WITH LUTEIN [Concomitant]
  9. FOSAMAX [Concomitant]
  10. THYROID TAB [Concomitant]

REACTIONS (13)
  - ADVERSE EVENT [None]
  - ANXIETY [None]
  - ARRHYTHMIA [None]
  - ASTHENIA [None]
  - ATRIAL FIBRILLATION [None]
  - CHRONIC OBSTRUCTIVE PULMONARY DISEASE [None]
  - CONDITION AGGRAVATED [None]
  - DISEASE PROGRESSION [None]
  - DIZZINESS [None]
  - EMOTIONAL DISTRESS [None]
  - HEART RATE INCREASED [None]
  - HEART RATE IRREGULAR [None]
  - PHARMACEUTICAL PRODUCT COMPLAINT [None]
